FAERS Safety Report 11806505 (Version 1)
Quarter: 2015Q4

REPORT INFORMATION
  Report Type: Spontaneous
  Country: US (occurrence: None)
  Receive Date: 20151204
  Receipt Date: 20151204
  Transmission Date: 20160305
  Serious: Yes (Hospitalization)
  Sender: FDA-Public Use
  Company Number: ADVERSE EVENT #699902

PATIENT
  Sex: Male
  Weight: 74.84 kg

DRUGS (2)
  1. METAMUCIL [Concomitant]
     Active Substance: PLANTAGO SEED
  2. EQUATE DOCUSATE SODIUM STOOL SOFTENER 100 MG 60 CT [Suspect]
     Active Substance: DOCUSATE SODIUM
     Indication: FAECES HARD
     Dates: start: 20151114, end: 20151115

REACTIONS (2)
  - Anaphylactic shock [None]
  - Product quality issue [None]

NARRATIVE: CASE EVENT DATE: 20151116
